FAERS Safety Report 20062156 (Version 1)
Quarter: 2021Q4

REPORT INFORMATION
  Report Type: Spontaneous
  Country: US (occurrence: None)
  Receive Date: 20211112
  Receipt Date: 20211112
  Transmission Date: 20220303
  Serious: Yes (Death)
  Sender: FDA-Public Use
  Company Number: US-MICRO LABS LIMITED-ML2021-03299

PATIENT
  Age: 66 Year
  Sex: Female

DRUGS (2)
  1. GLIMEPIRIDE [Suspect]
     Active Substance: GLIMEPIRIDE
  2. TRAMADOL [Suspect]
     Active Substance: TRAMADOL

REACTIONS (3)
  - Agitation [Fatal]
  - Hypoglycaemia [Fatal]
  - Toxicity to various agents [Fatal]
